FAERS Safety Report 9083956 (Version 1)
Quarter: 2013Q1

REPORT INFORMATION
  Report Type: Spontaneous
  Country: US (occurrence: US)
  Receive Date: 20130131
  Receipt Date: 20130131
  Transmission Date: 20140127
  Serious: No
  Sender: FDA-Public Use
  Company Number: US-ABBOTT-12P-163-0999374-00

PATIENT
  Age: 24 Year
  Sex: Female
  Weight: 73.55 kg

DRUGS (5)
  1. HUMIRA [Suspect]
     Indication: CROHN^S DISEASE
     Dates: start: 20101115, end: 20110725
  2. PRENATAL VITAMINS [Concomitant]
     Indication: PRODUCT USED FOR UNKNOWN INDICATION
     Route: 048
     Dates: start: 20110307, end: 20110822
  3. TYLENOL [Concomitant]
     Indication: HEADACHE
     Dates: start: 20101115, end: 20110828
  4. IRON [Concomitant]
     Indication: ANAEMIA
     Route: 048
     Dates: start: 20110629, end: 20110822
  5. TUMS [Concomitant]
     Indication: DYSPEPSIA
     Dates: start: 20110629, end: 20110822

REACTIONS (5)
  - Anaemia [Unknown]
  - Headache [Unknown]
  - Respiratory tract infection [Unknown]
  - Dyspepsia [Unknown]
  - Amniotic fluid volume decreased [Unknown]
